FAERS Safety Report 20591230 (Version 1)
Quarter: 2022Q1

REPORT INFORMATION
  Report Type: Spontaneous
  Country: US (occurrence: US)
  Receive Date: 20220314
  Receipt Date: 20220314
  Transmission Date: 20220423
  Serious: No
  Sender: FDA-Public Use
  Company Number: US-SANOFI-01002031

PATIENT
  Age: 75 Year
  Sex: Female

DRUGS (1)
  1. MULTAQ [Suspect]
     Active Substance: DRONEDARONE
     Dosage: 400 MG
     Dates: start: 20220125

REACTIONS (3)
  - Oedema peripheral [Unknown]
  - Nausea [Unknown]
  - Rash [Unknown]
